FAERS Safety Report 12837434 (Version 2)
Quarter: 2018Q1

REPORT INFORMATION
  Report Type: Report from Study
  Country: JP (occurrence: JP)
  Receive Date: 20161011
  Receipt Date: 20180226
  Transmission Date: 20180508
  Serious: Yes (Life-Threatening, Hospitalization)
  Sender: FDA-Public Use
  Company Number: JP-B.I. PHARMACEUTICALS,INC./RIDGEFIELD-2015-BI-52632NB

PATIENT
  Age: 71 Year
  Sex: Male
  Weight: 59.5 kg

DRUGS (14)
  1. TRAJENTA [Suspect]
     Active Substance: LINAGLIPTIN
     Indication: TYPE 2 DIABETES MELLITUS
     Route: 048
     Dates: start: 20141223, end: 20170424
  2. GLIMICRON [Concomitant]
     Active Substance: GLICLAZIDE
     Route: 048
     Dates: start: 20150915
  3. MICARDIS [Concomitant]
     Active Substance: TELMISARTAN
     Indication: PRODUCT USED FOR UNKNOWN INDICATION
     Route: 048
  4. GASCON [Concomitant]
     Active Substance: DIMETHICONE
     Indication: PREOPERATIVE CARE
     Route: 048
     Dates: start: 20150722, end: 20150722
  5. HICEE [Concomitant]
     Indication: PROPHYLAXIS
     Route: 048
     Dates: start: 20150713, end: 20150727
  6. FORSENID [Concomitant]
     Active Substance: SENNOSIDES A AND B
     Indication: PREOPERATIVE CARE
     Route: 048
     Dates: start: 20150722, end: 20150722
  7. FERROMIA [Concomitant]
     Active Substance: SODIUM FERROUS CITRATE
     Indication: PROPHYLAXIS
     Route: 048
     Dates: start: 20150713, end: 20150729
  8. MAGLAX [Concomitant]
     Active Substance: MAGNESIUM OXIDE
     Indication: PROPHYLAXIS
     Route: 048
     Dates: start: 20160112, end: 20160202
  9. GLIMICRON [Concomitant]
     Active Substance: GLICLAZIDE
     Indication: TYPE 2 DIABETES MELLITUS
     Route: 048
     Dates: end: 20150914
  10. AMLODIPINE [Concomitant]
     Active Substance: AMLODIPINE BESYLATE
     Indication: PRODUCT USED FOR UNKNOWN INDICATION
     Route: 048
  11. GENTACIN [Concomitant]
     Active Substance: GENTAMICIN SULFATE
     Indication: POSTOPERATIVE CARE
     Route: 062
     Dates: start: 20150806, end: 201508
  12. VOGLIBOSE OD [Concomitant]
     Active Substance: VOGLIBOSE
     Indication: TYPE 2 DIABETES MELLITUS
     Route: 048
  13. METGLUCO [Concomitant]
     Active Substance: METFORMIN HYDROCHLORIDE
     Indication: TYPE 2 DIABETES MELLITUS
     Route: 048
     Dates: end: 20150713
  14. TSUMURA KOSOSAN EXTRACT [Concomitant]
     Indication: PROPHYLAXIS
     Route: 048
     Dates: start: 20160208, end: 20160403

REACTIONS (2)
  - Gallbladder cancer [Recovered/Resolved]
  - Back pain [Recovered/Resolved]

NARRATIVE: CASE EVENT DATE: 20150701
